FAERS Safety Report 23861571 (Version 1)
Quarter: 2024Q2

REPORT INFORMATION
  Report Type: Report from Study
  Country: US (occurrence: US)
  Receive Date: 20240516
  Receipt Date: 20240516
  Transmission Date: 20240715
  Serious: Yes (Disabling)
  Sender: FDA-Public Use
  Company Number: US-TEVA-VS-3191714

PATIENT
  Age: 42 Year
  Sex: Male

DRUGS (17)
  1. AUSTEDO [Suspect]
     Active Substance: DEUTETRABENAZINE
     Indication: Generalised anxiety disorder
     Route: 048
  2. DEPAKOTE ER [Concomitant]
     Active Substance: DIVALPROEX SODIUM
  3. LISINOPRIL [Concomitant]
     Active Substance: LISINOPRIL
  4. Methocarbamo [Concomitant]
  5. PROPRANOLOL [Concomitant]
     Active Substance: PROPRANOLOL HYDROCHLORIDE
  6. AJOVY [Concomitant]
     Active Substance: FREMANEZUMAB-VFRM
     Dosage: 225 MG/1.5 ML
  7. CELEBREX [Concomitant]
     Active Substance: CELECOXIB
  8. TOPIRAMATE [Concomitant]
     Active Substance: TOPIRAMATE
  9. Amlodipine B [Concomitant]
  10. Buspirone HC [Concomitant]
  11. LYRICA [Concomitant]
     Active Substance: PREGABALIN
  12. Trazodone HC [Concomitant]
  13. GEODON [Concomitant]
     Active Substance: ZIPRASIDONE HYDROCHLORIDE\ZIPRASIDONE MESYLATE
  14. LATUDA [Concomitant]
     Active Substance: LURASIDONE HYDROCHLORIDE
  15. LEXAPRO [Concomitant]
     Active Substance: ESCITALOPRAM OXALATE
  16. OZEMPIC [Concomitant]
     Active Substance: SEMAGLUTIDE
     Dosage: 0.2 SOP 2MG/3ML
  17. ROSUVASTATIN [Concomitant]
     Active Substance: ROSUVASTATIN

REACTIONS (4)
  - Disability [Not Recovered/Not Resolved]
  - Tremor [Not Recovered/Not Resolved]
  - Impaired work ability [Not Recovered/Not Resolved]
  - Product use in unapproved indication [Unknown]
